FAERS Safety Report 10205935 (Version 2)
Quarter: 2014Q4

REPORT INFORMATION
  Report Type: Spontaneous
  Country: US (occurrence: US)
  Receive Date: 20140530
  Receipt Date: 20141017
  Transmission Date: 20150528
  Serious: No
  Sender: FDA-Public Use
  Company Number: US-009507513-1405USA011885

PATIENT
  Age: 24 Year
  Sex: Female
  Weight: 96 kg

DRUGS (1)
  1. NEXPLANON [Suspect]
     Active Substance: ETONOGESTREL
     Dosage: DOSE/FREQUENCY: ^ONE SINGLE ROD^
     Route: 059
     Dates: start: 20140329, end: 20140516

REACTIONS (12)
  - Device difficult to use [Recovered/Resolved with Sequelae]
  - Paraesthesia [Unknown]
  - Peripheral swelling [Unknown]
  - Mood swings [Unknown]
  - Device difficult to use [Recovered/Resolved with Sequelae]
  - Weight increased [Unknown]
  - Mood altered [Unknown]
  - Medical device complication [Recovered/Resolved with Sequelae]
  - Device deployment issue [Recovered/Resolved with Sequelae]
  - Median nerve injury [Unknown]
  - Device difficult to use [Recovered/Resolved with Sequelae]
  - Pain in extremity [Unknown]

NARRATIVE: CASE EVENT DATE: 2014
